FAERS Safety Report 13010069 (Version 1)
Quarter: 2016Q4

REPORT INFORMATION
  Report Type: Report from Study
  Country: BR (occurrence: BR)
  Receive Date: 20161208
  Receipt Date: 20161208
  Transmission Date: 20170207
  Serious: Yes (Hospitalization, Other)
  Sender: FDA-Public Use
  Company Number: BR-JNJFOC-20161201333

PATIENT
  Age: 56 Year
  Sex: Female

DRUGS (9)
  1. REMICADE [Suspect]
     Active Substance: INFLIXIMAB
     Indication: COLITIS
     Route: 042
     Dates: start: 20161007
  2. MESALAZINE [Concomitant]
     Active Substance: MESALAMINE
     Route: 065
  3. MECLIN [Concomitant]
     Route: 065
  4. CAPTOPRIL. [Concomitant]
     Active Substance: CAPTOPRIL
     Route: 065
  5. SIMVASTATIN. [Concomitant]
     Active Substance: SIMVASTATIN
     Route: 065
  6. LABIRIN [Concomitant]
     Active Substance: BETAHISTINE
     Route: 065
  7. RANITIDINE. [Concomitant]
     Active Substance: RANITIDINE
     Route: 065
  8. REMICADE [Suspect]
     Active Substance: INFLIXIMAB
     Indication: COLITIS
     Route: 042
     Dates: start: 2009
  9. HYDROXYCHLOROQUINE [Concomitant]
     Active Substance: HYDROXYCHLOROQUINE
     Route: 065

REACTIONS (8)
  - Dyspnoea [Recovered/Resolved]
  - Systemic lupus erythematosus [Unknown]
  - Blood cholesterol abnormal [Recovering/Resolving]
  - Chest pain [Unknown]
  - Labyrinthitis [Unknown]
  - Inflammation [Unknown]
  - Back pain [Recovered/Resolved]
  - Memory impairment [Recovered/Resolved]

NARRATIVE: CASE EVENT DATE: 2012
